FAERS Safety Report 9546462 (Version 1)
Quarter: 2013Q3

REPORT INFORMATION
  Report Type: Spontaneous
  Country: FR (occurrence: FR)
  Receive Date: 20130923
  Receipt Date: 20130923
  Transmission Date: 20140515
  Serious: Yes (Death)
  Sender: FDA-Public Use
  Company Number: FR-MYLANLABS-2013S1020832

PATIENT
  Age: 25 Year
  Sex: Female

DRUGS (6)
  1. MIFEPRISTONE [Suspect]
     Indication: ABORTION INDUCED
     Route: 048
  2. PREDNISOLONE [Interacting]
     Indication: RESPIRATORY FAILURE
     Dosage: 40MG
     Route: 048
  3. HYDROCORTISONE [Interacting]
     Dosage: 100MG
     Route: 042
  4. MEROPENEM [Concomitant]
     Indication: ANTIBIOTIC THERAPY
     Route: 042
  5. ROPIVACAINE [Concomitant]
     Indication: ANALGESIC THERAPY
     Dosage: TITRATED DOSES OF 1 MG/ML
     Route: 065
  6. MISOPROSTOL [Concomitant]
     Indication: ABORTION INDUCED
     Route: 048

REACTIONS (2)
  - Respiratory failure [Fatal]
  - Drug interaction [Fatal]
